FAERS Safety Report 13440329 (Version 1)
Quarter: 2017Q2

REPORT INFORMATION
  Report Type: Spontaneous
  Country: US (occurrence: US)
  Receive Date: 20170413
  Receipt Date: 20170413
  Transmission Date: 20170830
  Serious: Yes (Other)
  Sender: FDA-Public Use
  Company Number: US-ZYDUS-014551

PATIENT
  Age: 58 Year
  Sex: Female

DRUGS (1)
  1. METHOTREXATE. [Suspect]
     Active Substance: METHOTREXATE
     Indication: RHEUMATOID ARTHRITIS
     Route: 048

REACTIONS (9)
  - Muscle spasticity [Unknown]
  - White matter lesion [Unknown]
  - Paraplegia [Unknown]
  - Reflexes abnormal [Unknown]
  - Muscular weakness [Unknown]
  - Lhermitte^s sign [Unknown]
  - CSF myelin basic protein increased [Unknown]
  - Myelopathy [Unknown]
  - Sensory loss [Unknown]
